FAERS Safety Report 9957606 (Version 1)
Quarter: 2014Q1

REPORT INFORMATION
  Report Type: Report from Study
  Country: US (occurrence: US)
  Receive Date: 20140304
  Receipt Date: 20140304
  Transmission Date: 20141002
  Serious: No
  Sender: FDA-Public Use
  Company Number: US-ABBVIE-13P-163-1094068-00

PATIENT
  Sex: Female

DRUGS (13)
  1. HUMIRA [Suspect]
     Indication: RHEUMATOID ARTHRITIS
     Dates: start: 201212
  2. MULTIVITAMIN [Concomitant]
     Indication: PRODUCT USED FOR UNKNOWN INDICATION
     Dosage: 1 DAILY
  3. PLAQUENIL [Concomitant]
     Indication: ARTHRITIS
  4. VOLTAREN [Concomitant]
     Indication: ARTHRITIS
  5. ZOLOFT [Concomitant]
     Indication: DEPRESSION
  6. CLARITIN [Concomitant]
     Indication: HYPERSENSITIVITY
  7. PREDNISONE [Concomitant]
     Indication: ARTHRITIS
  8. FOLIC ACID [Concomitant]
     Indication: ARTHRITIS
  9. PRAVASTATIN [Concomitant]
     Indication: BLOOD CHOLESTEROL INCREASED
  10. OMEPRAZOLE [Concomitant]
     Indication: GASTRIC DISORDER
  11. UNISOM [Concomitant]
     Indication: INSOMNIA
  12. ASPIRIN [Concomitant]
     Indication: ARTHRITIS
  13. CALCIUM +D [Concomitant]
     Indication: MENOPAUSE

REACTIONS (3)
  - Arthralgia [Not Recovered/Not Resolved]
  - Meniscus cyst [Unknown]
  - Ligament rupture [Unknown]
